FAERS Safety Report 5273715-3 (Version None)
Quarter: 2007Q1

REPORT INFORMATION
  Report Type: 
  Country: None (occurrence: None)
  Receive Date: 20070321
  Receipt Date: 20070321
  Transmission Date: 20070707
  Serious: No
  Sender: FDA-Public Use
  Company Number: None

PATIENT
  Age: 53 Year
  Sex: Male
  Weight: 72.1219 kg

DRUGS (1)
  1. LEVOTHYROXINE SODIUM [Suspect]
     Indication: THYROID DISORDER
     Dates: start: 20070224, end: 20070307

REACTIONS (4)
  - AGITATION [None]
  - AMNESIA [None]
  - DRUG DISPENSING ERROR [None]
  - ENERGY INCREASED [None]
